FAERS Safety Report 5707840-7 (Version None)
Quarter: 2008Q2

REPORT INFORMATION
  Report Type: 
  Country: None (occurrence: None)
  Receive Date: 20080417
  Receipt Date: 20080408
  Transmission Date: 20081010
  Serious: Yes (Hospitalization, Other)
  Sender: FDA-Public Use
  Company Number: GB-JNJFOC-20080402960

PATIENT
  Sex: Male
  Weight: 109 kg

DRUGS (4)
  1. INFLIXIMAB [Suspect]
     Indication: RHEUMATOID ARTHRITIS
     Route: 042
  2. CO CODAMOL [Concomitant]
  3. DICLOFENAC SODIUM [Concomitant]
  4. PARACETAMOL [Concomitant]

REACTIONS (1)
  - CHOLECYSTECTOMY [None]
